FAERS Safety Report 4741835-5 (Version None)
Quarter: 2005Q3

REPORT INFORMATION
  Report Type: 
  Country: None (occurrence: None)
  Receive Date: 20050808
  Receipt Date: 20050726
  Transmission Date: 20060218
  Serious: Yes (Life-Threatening, Hospitalization)
  Sender: FDA-Public Use
  Company Number: 2005107605

PATIENT
  Age: 35 Year
  Sex: Male

DRUGS (1)
  1. DIFLUCAN [Suspect]
     Indication: ILL-DEFINED DISORDER
     Dosage: 100 MG (100 MG, ONCE), ORAL
     Route: 048
     Dates: start: 20050719, end: 20050719

REACTIONS (8)
  - ATELECTASIS [None]
  - COMA [None]
  - CONVULSION [None]
  - FEELING ABNORMAL [None]
  - PALLOR [None]
  - PNEUMONIA ASPIRATION [None]
  - VERTIGO [None]
  - VOMITING [None]
